FAERS Safety Report 6272698-7 (Version None)
Quarter: 2009Q3

REPORT INFORMATION
  Report Type: 
  Country: None (occurrence: None)
  Receive Date: 20090717
  Receipt Date: 20090709
  Transmission Date: 20100115
  Serious: Yes (Other)
  Sender: FDA-Public Use
  Company Number: JP-GENENTECH-286916

PATIENT
  Age: 44 Year
  Sex: Female

DRUGS (6)
  1. RITUXAN [Suspect]
     Indication: B-CELL LYMPHOMA
     Dosage: 250 MG/M2, UNK
     Route: 042
     Dates: start: 20090303, end: 20090310
  2. ZEVALIN [Suspect]
     Indication: B-CELL LYMPHOMA
     Dosage: 14.8 UNK, UNK
     Route: 042
     Dates: start: 20090310
  3. ZEVALIN [Suspect]
     Indication: B-CELL LYMPHOMA
     Dosage: 130 MBQ, UNK
     Route: 042
     Dates: start: 20090303
  4. ZOLPIDEM [Concomitant]
     Indication: INSOMNIA
     Dosage: 10 MG, UNK
     Route: 048
     Dates: start: 20090301
  5. ALLOPURINOL [Concomitant]
     Indication: RENAL IMPAIRMENT
     Dosage: 200 MG, UNK
     Route: 048
     Dates: start: 20090309
  6. TAKEPRON [Concomitant]
     Indication: DUODENAL ULCER
     Dosage: 30 MG, UNK
     Route: 048
     Dates: start: 20090309

REACTIONS (1)
  - RENAL IMPAIRMENT [None]
